FAERS Safety Report 4709005-4 (Version None)
Quarter: 2005Q3

REPORT INFORMATION
  Report Type: 
  Country: None (occurrence: None)
  Receive Date: 20050707
  Receipt Date: 20050615
  Transmission Date: 20060218
  Serious: Yes (Death)
  Sender: FDA-Public Use
  Company Number: SX02010027

PATIENT
  Age: 5 Month
  Sex: Female

DRUGS (1)
  1. XOPENEX [Suspect]
     Indication: PNEUMONIA
     Dosage: 0.63 MG/3ML;Q8H; INHALATION
     Route: 055

REACTIONS (9)
  - ASPIRATION [None]
  - ASTHMA [None]
  - BRONCHITIS CHRONIC [None]
  - BRONCHOPNEUMONIA [None]
  - CARDIO-RESPIRATORY ARREST [None]
  - CHOKING [None]
  - PULMONARY CONGESTION [None]
  - PULMONARY HAEMORRHAGE [None]
  - VOMITING [None]
